FAERS Safety Report 10048352 (Version 1)
Quarter: 2014Q1

REPORT INFORMATION
  Report Type: Spontaneous
  Country: JP (occurrence: JP)
  Receive Date: 20140331
  Receipt Date: 20140331
  Transmission Date: 20141002
  Serious: Yes (Other)
  Sender: FDA-Public Use
  Company Number: JP-GLAXOSMITHKLINE-B0976543A

PATIENT
  Sex: Female

DRUGS (3)
  1. LAMICTAL [Suspect]
     Indication: BIPOLAR DISORDER
     Dosage: 50MG ALTERNATE DAYS
     Route: 048
     Dates: end: 20140303
  2. QUETIAPINE [Concomitant]
     Route: 048
     Dates: end: 20140303
  3. WYPAX [Concomitant]
     Route: 048
     Dates: end: 20140303

REACTIONS (6)
  - Drug reaction with eosinophilia and systemic symptoms [Recovering/Resolving]
  - Rash [Recovering/Resolving]
  - Erythema [Recovered/Resolved]
  - Swelling [Recovered/Resolved]
  - Mucosal erosion [Recovered/Resolved]
  - Paraesthesia oral [Recovered/Resolved]
